FAERS Safety Report 10230749 (Version 1)
Quarter: 2014Q2

REPORT INFORMATION
  Report Type: Report from Study
  Country: US (occurrence: US)
  Receive Date: 20140611
  Receipt Date: 20140611
  Transmission Date: 20141212
  Serious: Yes (Other)
  Sender: FDA-Public Use
  Company Number: US-ABBVIE-14P-163-1243367-00

PATIENT
  Age: 37 Year
  Sex: Female

DRUGS (9)
  1. LUPANETA PACK [Suspect]
     Indication: ENDOMETRIOSIS
     Dosage: 10 APR 2014 SHIPPED TO PATIENT
     Dates: start: 201404
  2. LUPANETA PACK [Suspect]
     Dates: start: 201106
  3. LUPANETA PACK [Suspect]
     Indication: ENDOMETRIOSIS
     Route: 048
     Dates: start: 201404
  4. IBUPROFEN [Concomitant]
     Indication: PRODUCT USED FOR UNKNOWN INDICATION
  5. TRAMADOL [Concomitant]
     Indication: PRODUCT USED FOR UNKNOWN INDICATION
  6. CYMBALTA [Concomitant]
     Indication: PRODUCT USED FOR UNKNOWN INDICATION
  7. BUSPAR [Concomitant]
     Indication: PRODUCT USED FOR UNKNOWN INDICATION
  8. GABAPENTIN [Concomitant]
     Indication: PRODUCT USED FOR UNKNOWN INDICATION
  9. FISH OIL [Concomitant]
     Indication: PRODUCT USED FOR UNKNOWN INDICATION

REACTIONS (1)
  - Gallbladder disorder [Recovered/Resolved]
